FAERS Safety Report 18443315 (Version 2)
Quarter: 2020Q4

REPORT INFORMATION
  Report Type: Spontaneous
  Country: CA (occurrence: CA)
  Receive Date: 20201029
  Receipt Date: 20201218
  Transmission Date: 20210114
  Serious: Yes (Other)
  Sender: FDA-Public Use
  Company Number: CA-009507513-2010CAN011040

PATIENT
  Age: 21 Year
  Sex: Female
  Weight: 60 kg

DRUGS (3)
  1. VANCOMYCIN [Suspect]
     Active Substance: VANCOMYCIN
     Dosage: MINIMUM INHIBITORY CONCENTRATION (MIC) OF 2
  2. CUBICIN RF [Suspect]
     Active Substance: DAPTOMYCIN
     Indication: ENDOCARDITIS STAPHYLOCOCCAL
     Dosage: 625 MILLIGRAM, Q24H
     Route: 042
     Dates: start: 20200611, end: 2020
  3. CUBICIN RF [Suspect]
     Active Substance: DAPTOMYCIN
     Dosage: 625 MILLIGRAM, Q24H
     Route: 042
     Dates: start: 20200709, end: 20200920

REACTIONS (1)
  - Pathogen resistance [Recovered/Resolved with Sequelae]

NARRATIVE: CASE EVENT DATE: 20200807
